FAERS Safety Report 4384614-3 (Version None)
Quarter: 2004Q2

REPORT INFORMATION
  Report Type: 
  Country: None (occurrence: None)
  Receive Date: 20040625
  Receipt Date: 20030617
  Transmission Date: 20050107
  Serious: No
  Sender: FDA-Public Use
  Company Number: US-BRISTOL-MYERS SQUIBB COMPANY-12305843

PATIENT
  Age: 55 Year
  Sex: Female
  Weight: 50 kg

DRUGS (1)
  1. SINEMET [Suspect]
     Indication: PARKINSON'S DISEASE
     Dosage: STARTED 25/100MG, 1/2 TAB 3X'S DAY FOR 2 WEEKS; THEN INCREASED TO WHOLE TAB, 1 TAB 3X'S DAY.
     Route: 048
     Dates: start: 20030401

REACTIONS (1)
  - NAUSEA [None]
